FAERS Safety Report 17152982 (Version 1)
Quarter: 2019Q4

REPORT INFORMATION
  Report Type: Spontaneous
  Country: US (occurrence: US)
  Receive Date: 20191213
  Receipt Date: 20191213
  Transmission Date: 20200122
  Serious: No
  Sender: FDA-Public Use
  Company Number: NVSC2019US067695

PATIENT
  Sex: Female
  Weight: 99.34 kg

DRUGS (2)
  1. LETROZOLE. [Suspect]
     Active Substance: LETROZOLE
     Indication: BREAST CANCER
     Dosage: 2.5 MG, QD
     Route: 048
     Dates: start: 201802, end: 201906
  2. IBRANCE [Suspect]
     Active Substance: PALBOCICLIB
     Indication: BREAST CANCER
     Dosage: 125 MG, QD (ALTERNATING 21 DAYS ON AND 21 DAYS OFF)
     Route: 048
     Dates: start: 201803, end: 201906

REACTIONS (1)
  - Gait disturbance [Not Recovered/Not Resolved]
